FAERS Safety Report 15541948 (Version 1)
Quarter: 2018Q4

REPORT INFORMATION
  Report Type: Spontaneous
  Country: US (occurrence: US)
  Receive Date: 20181023
  Receipt Date: 20181023
  Transmission Date: 20190205
  Serious: Yes (Other)
  Sender: FDA-Public Use
  Company Number: US-NAPPMUNDI-USA-2018-0144849

PATIENT
  Sex: Female

DRUGS (1)
  1. OXYCODONE HYDROCHLORIDE (SIMILAR TO NDA 22-272) [Suspect]
     Active Substance: OXYCODONE HYDROCHLORIDE
     Indication: PAIN
     Route: 048

REACTIONS (7)
  - Impaired driving ability [Unknown]
  - Dysarthria [Unknown]
  - Gait disturbance [Unknown]
  - Somnolence [Unknown]
  - Miosis [Unknown]
  - Dry mouth [Unknown]
  - Cognitive disorder [Unknown]
